FAERS Safety Report 8359145 (Version 3)
Quarter: 2013Q1

REPORT INFORMATION
  Report Type: Spontaneous
  Country: US (occurrence: US)
  Receive Date: 20120127
  Receipt Date: 20130122
  Transmission Date: 20140127
  Serious: Yes (Death, Other)
  Sender: FDA-Public Use
  Company Number: US-ELI_LILLY_AND_COMPANY-US201201006623

PATIENT
  Sex: Female

DRUGS (5)
  1. BYETTA [Suspect]
     Dosage: UNK
     Dates: start: 200703, end: 200802
  2. METFORMIN [Concomitant]
  3. LEVOXYL [Concomitant]
  4. ENALAPRIL [Concomitant]
  5. LIPITOR [Concomitant]

REACTIONS (4)
  - Adenocarcinoma pancreas [Fatal]
  - Metastases to liver [Unknown]
  - Metastases to lung [Unknown]
  - Metastases to bone [Unknown]
